FAERS Safety Report 10143055 (Version 1)
Quarter: 2014Q2

REPORT INFORMATION
  Report Type: Spontaneous
  Country: US (occurrence: None)
  Receive Date: 20140429
  Receipt Date: 20140429
  Transmission Date: 20141212
  Serious: Yes (Other)
  Sender: FDA-Public Use
  Company Number: None

PATIENT
  Age: 50 Year
  Sex: Female
  Weight: 109.77 kg

DRUGS (1)
  1. CYMBALTA [Suspect]
     Indication: FIBROMYALGIA
     Route: 048
     Dates: start: 20131020, end: 20140428

REACTIONS (18)
  - Drug ineffective [None]
  - Anxiety [None]
  - Asthenia [None]
  - Dizziness [None]
  - Headache [None]
  - Nausea [None]
  - Insomnia [None]
  - Abnormal dreams [None]
  - Night sweats [None]
  - Formication [None]
  - Influenza [None]
  - Pyrexia [None]
  - Sleep disorder [None]
  - Musculoskeletal stiffness [None]
  - Pain in jaw [None]
  - Lip dry [None]
  - Muscle twitching [None]
  - Diarrhoea [None]
